FAERS Safety Report 18406447 (Version 1)
Quarter: 2020Q4

REPORT INFORMATION
  Report Type: Report from Study
  Country: IT (occurrence: IT)
  Receive Date: 20201020
  Receipt Date: 20201020
  Transmission Date: 20210114
  Serious: Yes (Life-Threatening)
  Sender: FDA-Public Use
  Company Number: IT-CELGENEUS-ITA-20201004346

PATIENT
  Age: 65 Year
  Sex: Female

DRUGS (4)
  1. ROMIDEPSIN. [Suspect]
     Active Substance: ROMIDEPSIN
     Indication: NON-HODGKIN^S LYMPHOMA STAGE IV
     Route: 041
     Dates: start: 20201013, end: 20201013
  2. RASBURICASE [Concomitant]
     Active Substance: RASBURICASE
     Indication: PRODUCT USED FOR UNKNOWN INDICATION
     Route: 065
     Dates: start: 20201013, end: 20201013
  3. CARVASIN [Concomitant]
     Active Substance: ISOSORBIDE DINITRATE
     Indication: PRODUCT USED FOR UNKNOWN INDICATION
     Dosage: 1 CP
     Route: 065
     Dates: start: 202010
  4. CHOEP [Concomitant]
     Active Substance: CYCLOPHOSPHAMIDE\DOXORUBICIN\ETOPOSIDE\PREDNISONE\VINCRISTINE
     Indication: NON-HODGKIN^S LYMPHOMA STAGE IV
     Route: 065
     Dates: start: 20201013, end: 20201013

REACTIONS (1)
  - Idiosyncratic drug reaction [Recovered/Resolved]

NARRATIVE: CASE EVENT DATE: 20201013
